FAERS Safety Report 14950801 (Version 1)
Quarter: 2018Q2

REPORT INFORMATION
  Report Type: Spontaneous
  Country: ES (occurrence: ES)
  Receive Date: 20180530
  Receipt Date: 20180530
  Transmission Date: 20180711
  Serious: Yes (Life-Threatening, Hospitalization)
  Sender: FDA-Public Use
  Company Number: PHHY2018ES010581

PATIENT
  Age: 62 Year
  Sex: Male

DRUGS (2)
  1. PREDNISONA [Concomitant]
     Active Substance: PREDNISONE
     Indication: GUILLAIN-BARRE SYNDROME
     Dosage: 5 MG, (EVERY 48 HOURS) Q48H
     Route: 048
  2. REVOLADE TAB [Suspect]
     Active Substance: ELTROMBOPAG
     Indication: IMMUNE THROMBOCYTOPENIC PURPURA
     Dosage: 50 MG, (IT TOOK TWO HOURS AFTER DINNER) QD
     Route: 048
     Dates: start: 2016

REACTIONS (1)
  - Acute monocytic leukaemia [Not Recovered/Not Resolved]
